FAERS Safety Report 16754256 (Version 2)
Quarter: 2019Q3

REPORT INFORMATION
  Report Type: Spontaneous
  Country: US (occurrence: US)
  Receive Date: 20190829
  Receipt Date: 20190924
  Transmission Date: 20191005
  Serious: No
  Sender: FDA-Public Use
  Company Number: US-HTU-2019US019088

PATIENT
  Sex: Female

DRUGS (1)
  1. VALCHLOR [Suspect]
     Active Substance: MECHLORETHAMINE
     Indication: CUTANEOUS T-CELL LYMPHOMA
     Dosage: THIN FILM, SINGLE
     Route: 061

REACTIONS (5)
  - Application site erythema [Unknown]
  - Skin erosion [Unknown]
  - Skin burning sensation [Unknown]
  - Pruritus [Unknown]
  - Application site exfoliation [Unknown]
